FAERS Safety Report 8538560-1 (Version None)
Quarter: 2012Q3

REPORT INFORMATION
  Report Type: 
  Country: None (occurrence: None)
  Receive Date: 20120718
  Receipt Date: 20120718
  Transmission Date: 20120928
  Serious: Yes (Hospitalization, Other)
  Sender: FDA-Public Use
  Company Number: None

PATIENT
  Age: 53 Year
  Sex: Female

DRUGS (1)
  1. BRIMONIDINE TARTRATE [Suspect]
     Indication: GLAUCOMA
     Dosage: 1 DROP IN EACH EYE 2 TIMES INTRAOCULAR
     Route: 031
     Dates: start: 20120613, end: 20120614

REACTIONS (3)
  - SOMNOLENCE [None]
  - DIZZINESS [None]
  - CHEST PAIN [None]
